FAERS Safety Report 16814361 (Version 1)
Quarter: 2019Q3

REPORT INFORMATION
  Report Type: Spontaneous
  Country: US (occurrence: US)
  Receive Date: 20190725
  Receipt Date: 20190725
  Transmission Date: 20191005
  Serious: Yes (Hospitalization)
  Sender: FDA-Public Use
  Company Number: None

PATIENT
  Age: 55 Year
  Sex: Female
  Weight: 64.8 kg

DRUGS (1)
  1. OLANZAPINE. [Suspect]
     Active Substance: OLANZAPINE
     Dates: end: 20190715

REACTIONS (8)
  - Tenosynovitis [None]
  - Osteomyelitis [None]
  - Condition aggravated [None]
  - Cellulitis [None]
  - Joint range of motion decreased [None]
  - Peripheral swelling [None]
  - Infected skin ulcer [None]
  - Erythema [None]

NARRATIVE: CASE EVENT DATE: 20190723
